FAERS Safety Report 6816342-6 (Version None)
Quarter: 2010Q3

REPORT INFORMATION
  Report Type: 
  Country: None (occurrence: None)
  Receive Date: 20100705
  Receipt Date: 20100621
  Transmission Date: 20110219
  Serious: Yes (Other)
  Sender: FDA-Public Use
  Company Number: PHHY2010PK40952

PATIENT
  Age: 70 Year
  Sex: Female

DRUGS (3)
  1. ACLASTA [Suspect]
     Indication: FEMUR FRACTURE
     Dosage: 5 MG/100 ML
     Route: 042
     Dates: start: 20100615
  2. ACLASTA [Suspect]
     Indication: SURGERY
  3. CALCIUM WITH VITAMIN D [Concomitant]

REACTIONS (2)
  - PAIN [None]
  - PAIN IN EXTREMITY [None]
